FAERS Safety Report 21102556 (Version 3)
Quarter: 2022Q3

REPORT INFORMATION
  Report Type: Spontaneous
  Country: JP (occurrence: None)
  Receive Date: 20220719
  Receipt Date: 20220802
  Transmission Date: 20221026
  Serious: Yes (Hospitalization)
  Sender: FDA-Public Use
  Company Number: 2022A256592

PATIENT

DRUGS (1)
  1. LOKELMA [Suspect]
     Active Substance: SODIUM ZIRCONIUM CYCLOSILICATE
     Dosage: DOSE UNKNOWN
     Route: 048

REACTIONS (3)
  - X-ray gastrointestinal tract abnormal [Unknown]
  - Feeding disorder [Unknown]
  - Performance status decreased [Unknown]

NARRATIVE: CASE EVENT DATE: 20220711
